FAERS Safety Report 18901809 (Version 3)
Quarter: 2021Q1

REPORT INFORMATION
  Report Type: Report from Study
  Country: US (occurrence: US)
  Receive Date: 20210216
  Receipt Date: 20210309
  Transmission Date: 20210420
  Serious: Yes (Other)
  Sender: FDA-Public Use
  Company Number: NVSC2021US036384

PATIENT
  Sex: Female

DRUGS (2)
  1. COSENTYX [Suspect]
     Active Substance: SECUKINUMAB
     Indication: DIZZINESS
     Dosage: 150 MG, Q2W
     Route: 058
     Dates: start: 20201101
  2. COSENTYX [Suspect]
     Active Substance: SECUKINUMAB
     Indication: ANKYLOSING SPONDYLITIS
     Dosage: 300 MG, QMO
     Route: 058

REACTIONS (5)
  - Dizziness [Unknown]
  - Musculoskeletal chest pain [Unknown]
  - Back pain [Unknown]
  - Ankylosing spondylitis [Unknown]
  - Product use in unapproved indication [Unknown]
